FAERS Safety Report 9304860 (Version 1)
Quarter: 2013Q2

REPORT INFORMATION
  Report Type: Spontaneous
  Country: US (occurrence: None)
  Receive Date: 20130521
  Receipt Date: 20130521
  Transmission Date: 20140414
  Serious: Yes (Other)
  Sender: FDA-Public Use
  Company Number: None

PATIENT
  Age: 25 Month
  Sex: Male

DRUGS (1)
  1. PROGRAF [Suspect]
     Route: 048
     Dates: start: 20121023

REACTIONS (3)
  - Decreased appetite [None]
  - Diarrhoea [None]
  - Drug level increased [None]
